FAERS Safety Report 20474926 (Version 1)
Quarter: 2022Q1

REPORT INFORMATION
  Report Type: Spontaneous
  Country: US (occurrence: None)
  Receive Date: 20220214
  Receipt Date: 20220214
  Transmission Date: 20220424
  Serious: Yes (unspecified)
  Sender: FDA-Public Use
  Company Number: None

PATIENT
  Age: 38 Year
  Sex: Female
  Weight: 60.75 kg

DRUGS (1)
  1. BOTOX [Suspect]
     Active Substance: ONABOTULINUMTOXINA
     Indication: Skin cosmetic procedure
     Dates: start: 20210216

REACTIONS (7)
  - Dry eye [None]
  - Dry mouth [None]
  - Panic attack [None]
  - Anxiety [None]
  - Swollen tongue [None]
  - Salivary gland pain [None]
  - Salivary gland disorder [None]

NARRATIVE: CASE EVENT DATE: 20210220
